FAERS Safety Report 7390451-8 (Version None)
Quarter: 2011Q2

REPORT INFORMATION
  Report Type: 
  Country: None (occurrence: None)
  Receive Date: 20110401
  Receipt Date: 20110322
  Transmission Date: 20111010
  Serious: Yes (Death)
  Sender: FDA-Public Use
  Company Number: CH-MERCK-1103USA02919

PATIENT
  Age: 52 Year
  Sex: Female

DRUGS (13)
  1. SOLU-CORTEF [Concomitant]
     Route: 042
     Dates: start: 20110227, end: 20110303
  2. FENTANYL [Concomitant]
     Route: 065
  3. NEUPOGEN [Concomitant]
     Route: 065
     Dates: start: 20010301, end: 20110302
  4. TRACRIUM [Concomitant]
     Route: 065
     Dates: start: 20110228, end: 20110228
  5. CORDARONE [Suspect]
     Route: 042
     Dates: start: 20110226, end: 20110226
  6. NEXIUM [Suspect]
     Route: 042
     Dates: start: 20110227, end: 20110302
  7. PRIMAXIN [Suspect]
     Route: 042
     Dates: start: 20110227, end: 20110227
  8. INSULIN [Concomitant]
     Route: 065
  9. POTASSIUM (UNSPECIFIED) [Concomitant]
     Route: 065
  10. DOBUTAMINE [Concomitant]
     Route: 065
  11. LEUCOVORIN CALCIUM [Concomitant]
     Route: 065
     Dates: start: 20010301, end: 20110302
  12. PRIMAXIN [Suspect]
     Route: 042
     Dates: start: 20110302, end: 20110305
  13. NOREPINEPHRINE [Concomitant]
     Route: 065

REACTIONS (1)
  - AGRANULOCYTOSIS [None]
